FAERS Safety Report 8391091-4 (Version None)
Quarter: 2012Q2

REPORT INFORMATION
  Report Type: 
  Country: None (occurrence: None)
  Receive Date: 20120529
  Receipt Date: 20120525
  Transmission Date: 20120825
  Serious: Yes (Life-Threatening, Hospitalization)
  Sender: FDA-Public Use
  Company Number: PHHY2012JP045154

PATIENT
  Age: 63 Year
  Sex: Female

DRUGS (3)
  1. CERTICAN [Suspect]
     Indication: PROPHYLAXIS AGAINST TRANSPLANT REJECTION
     Route: 048
  2. STEROIDS NOS [Concomitant]
  3. PLASMAPHERESIS BLOOD-PACK SYSTEM INFUSION [Concomitant]

REACTIONS (3)
  - URINE OUTPUT DECREASED [None]
  - KIDNEY TRANSPLANT REJECTION [None]
  - RENAL HAEMORRHAGE [None]
